FAERS Safety Report 8925838 (Version 2)
Quarter: 2012Q4

REPORT INFORMATION
  Report Type: 
  Country: US (occurrence: US)
  Receive Date: 20121126
  Receipt Date: 20121211
  Transmission Date: 20130627
  Serious: Yes (Hospitalization)
  Sender: FDA-Public Use
  Company Number: US-ASTRAZENECA-2012SE87780

PATIENT
  Age: 61 Year
  Sex: Female
  Weight: 58.1 kg

DRUGS (7)
  1. SEROQUEL XR [Suspect]
     Indication: BIPOLAR DISORDER
     Route: 048
  2. SEROQUEL XR [Suspect]
     Indication: DEPRESSION
     Route: 048
  3. VIMOVO [Suspect]
     Dosage: 375 mg/20 mg
     Route: 048
  4. VIMOVO [Suspect]
     Dosage: 500 mg/20 mg
     Route: 048
  5. LEXAPRO [Concomitant]
  6. PROVIGIL [Concomitant]
  7. KLONOPIN [Concomitant]
     Indication: ANXIETY

REACTIONS (7)
  - Chronic obstructive pulmonary disease [Unknown]
  - Anxiety [Unknown]
  - Pain [Recovered/Resolved]
  - Dyspnoea [Unknown]
  - Middle insomnia [Unknown]
  - Drug effect incomplete [Recovered/Resolved]
  - Drug dose omission [Unknown]
